FAERS Safety Report 4662089-4 (Version None)
Quarter: 2005Q2

REPORT INFORMATION
  Report Type: 
  Country: None (occurrence: None)
  Receive Date: 20050516
  Receipt Date: 20050510
  Transmission Date: 20051028
  Serious: Yes (Other)
  Sender: FDA-Public Use
  Company Number: PHBS2005JP06683

PATIENT

DRUGS (2)
  1. RITALIN [Suspect]
     Dosage: 20 MG/D
     Route: 048
     Dates: start: 20050509
  2. MORPHINE HCL ELIXIR [Concomitant]
     Indication: NEOPLASM
     Route: 065

REACTIONS (1)
  - BLOOD CREATINE PHOSPHOKINASE INCREASED [None]
